FAERS Safety Report 6993604-3 (Version None)
Quarter: 2010Q3

REPORT INFORMATION
  Report Type: 
  Country: None (occurrence: None)
  Receive Date: 20100917
  Receipt Date: 20100913
  Transmission Date: 20110219
  Serious: Yes (Death, Hospitalization, Disabling, Other)
  Sender: FDA-Public Use
  Company Number: PHEH2007US02906

PATIENT
  Sex: Male
  Weight: 81 kg

DRUGS (10)
  1. ZOMETA [Suspect]
     Dosage: UNK
     Dates: end: 20060801
  2. CYTOXAN [Concomitant]
  3. DECADRON [Concomitant]
  4. OXYCONTIN [Concomitant]
  5. TAXOTERE [Concomitant]
  6. EMCYT [Concomitant]
  7. ALOXI [Concomitant]
  8. NEULASTA [Concomitant]
  9. VICODIN [Concomitant]
  10. ZOLADEX [Concomitant]

REACTIONS (44)
  - ABSCESS DRAINAGE [None]
  - ADENOCARCINOMA [None]
  - ALVEOLOPLASTY [None]
  - ANXIETY [None]
  - AXILLARY PAIN [None]
  - BLADDER CANCER [None]
  - BLADDER MASS [None]
  - BONE LESION EXCISION [None]
  - BONE SWELLING [None]
  - DECREASED INTEREST [None]
  - DYSPNOEA EXERTIONAL [None]
  - ERYTHEMA [None]
  - GENERAL PHYSICAL HEALTH DETERIORATION [None]
  - HAEMATURIA [None]
  - HAEMOPTYSIS [None]
  - HYPERTENSION [None]
  - HYPOAESTHESIA [None]
  - HYPOTENSION [None]
  - IMPAIRED HEALING [None]
  - LYMPHADENOPATHY [None]
  - MALIGNANT NEOPLASM PROGRESSION [None]
  - MASS [None]
  - METASTASES TO BONE [None]
  - METASTASES TO CENTRAL NERVOUS SYSTEM [None]
  - METASTASES TO LIVER [None]
  - METASTASES TO LUNG [None]
  - OPEN WOUND [None]
  - ORAL CAVITY FISTULA [None]
  - OSTEONECROSIS OF JAW [None]
  - OSTEOSARCOMA METASTATIC [None]
  - PAIN [None]
  - PAIN IN JAW [None]
  - PARAESTHESIA ORAL [None]
  - PLEURAL EFFUSION [None]
  - PNEUMONIA [None]
  - PULMONARY MASS [None]
  - PULMONARY OEDEMA [None]
  - RENAL IMPAIRMENT [None]
  - TACHYCARDIA [None]
  - TOOTH EXTRACTION [None]
  - URETERAL NECROSIS [None]
  - URETERIC OBSTRUCTION [None]
  - VASOGENIC CEREBRAL OEDEMA [None]
  - WOUND DEHISCENCE [None]
